FAERS Safety Report 8599688-3 (Version None)
Quarter: 2012Q3

REPORT INFORMATION
  Report Type: 
  Country: None (occurrence: None)
  Receive Date: 20120802
  Receipt Date: 20120719
  Transmission Date: 20120928
  Serious: Yes (Other)
  Sender: FDA-Public Use
  Company Number: NGX_01196_2012

PATIENT
  Age: 62 Year
  Sex: Female

DRUGS (3)
  1. ACETAMINOPHEN AND TRAMADOL HCL [Concomitant]
  2. QUTENZA [Suspect]
     Indication: ALLODYNIA
     Dosage: (DF [PATCH,  APPLIED TO THE KNEE] TOPICAL)
     Route: 061
     Dates: start: 20120712, end: 20120712
  3. QUTENZA [Suspect]
     Indication: NEURALGIA
     Dosage: (DF [PATCH,  APPLIED TO THE KNEE] TOPICAL)
     Route: 061
     Dates: start: 20120712, end: 20120712

REACTIONS (10)
  - HYPOTHERMIA [None]
  - MALAISE [None]
  - LOSS OF CONSCIOUSNESS [None]
  - NAUSEA [None]
  - NEURALGIA [None]
  - ALLODYNIA [None]
  - PRESYNCOPE [None]
  - SYNCOPE [None]
  - HYPOTENSION [None]
  - VOMITING [None]
